FAERS Safety Report 5285099-5 (Version None)
Quarter: 2007Q2

REPORT INFORMATION
  Report Type: 
  Country: None (occurrence: None)
  Receive Date: 20070403
  Receipt Date: 20070322
  Transmission Date: 20071010
  Serious: Yes (Other)
  Sender: FDA-Public Use
  Company Number: PHNR2006AU01587

PATIENT
  Age: 60 Year
  Sex: Female

DRUGS (1)
  1. ESTRADIOL [Suspect]
     Indication: HORMONE REPLACEMENT THERAPY
     Dosage: 50/250 EVERY 3-4 DAYS
     Route: 062
     Dates: start: 19960101

REACTIONS (3)
  - INSOMNIA [None]
  - MENOPAUSAL SYMPTOMS [None]
  - PHARMACEUTICAL PRODUCT COMPLAINT [None]
